FAERS Safety Report 6318456-6 (Version None)
Quarter: 2009Q3

REPORT INFORMATION
  Report Type: 
  Country: None (occurrence: None)
  Receive Date: 20090821
  Receipt Date: 20090811
  Transmission Date: 20100115
  Serious: Yes (Hospitalization)
  Sender: FDA-Public Use
  Company Number: US-ROCHE-650280

PATIENT
  Age: 56 Year
  Sex: Male
  Weight: 140 kg

DRUGS (17)
  1. MYCOPHENOLATE MOFETIL [Suspect]
     Indication: IMMUNOSUPPRESSION
     Route: 048
     Dates: start: 20081002, end: 20081122
  2. MYCOPHENOLATE MOFETIL [Suspect]
     Dosage: DOSE DECREASED
     Route: 048
     Dates: start: 20081122
  3. CP-690550 [Suspect]
     Indication: KIDNEY TRANSPLANT REJECTION
     Route: 048
     Dates: start: 20080925
  4. VALCYTE [Concomitant]
     Dosage: AT BED TIME
     Dates: start: 20081002, end: 20081122
  5. VALCYTE [Concomitant]
     Dates: start: 20081123, end: 20081124
  6. VALCYTE [Concomitant]
     Dates: start: 20081125
  7. DILTIAZEM [Concomitant]
     Dates: start: 20081002
  8. COLACE [Concomitant]
     Dates: start: 20081002
  9. FOLIC ACID [Concomitant]
     Dates: start: 20081002
  10. VITAMINS NOS [Concomitant]
     Dates: start: 20081002
  11. PRILOSEC [Concomitant]
     Dates: start: 20081002
  12. ZOCOR [Concomitant]
     Dates: start: 20081002
  13. VICODIN [Concomitant]
     Dates: start: 20081002
  14. METOPROLOL [Concomitant]
     Dates: start: 20081002
  15. NAPROVITE [Concomitant]
     Dates: start: 20081002
  16. NEPHRO-VITE [Concomitant]
     Route: 048
     Dates: start: 20081002
  17. BACTRIM [Concomitant]
     Dosage: DAILY
     Dates: start: 20081002

REACTIONS (2)
  - KIDNEY TRANSPLANT REJECTION [None]
  - TRANSPLANT REJECTION [None]
